FAERS Safety Report 4866275-X (Version None)
Quarter: 2005Q4

REPORT INFORMATION
  Report Type: 
  Country: None (occurrence: None)
  Receive Date: 20051221
  Receipt Date: 20051215
  Transmission Date: 20060501
  Serious: Yes (Other)
  Sender: FDA-Public Use
  Company Number: 2005168885

PATIENT
  Sex: Female
  Weight: 68.0396 kg

DRUGS (7)
  1. CELEBREX [Suspect]
     Indication: ARTHRITIS
     Dosage: 400 MG )200 MG, 2 IN 1 D)
  2. ZYRTEC [Suspect]
     Indication: ALLERGIC SINUSITIS
     Dosage: 10 MG (10 MG, 1 IN 1 D)
  3. ALL OTHER THERAPEUTIC PRODUCTS (ALL OTHER THERAPEUTIC PRODUCTS) [Concomitant]
  4. SULAR [Concomitant]
  5. EVISTA [Concomitant]
  6. HYDROCODONE BITARTRATE [Concomitant]
  7. MEGACE [Concomitant]

REACTIONS (2)
  - ARTHRITIS [None]
  - TREATMENT NONCOMPLIANCE [None]
